FAERS Safety Report 12337249 (Version 18)
Quarter: 2017Q3

REPORT INFORMATION
  Report Type: Report from Study
  Country: US (occurrence: US)
  Receive Date: 20160505
  Receipt Date: 20170919
  Transmission Date: 20171127
  Serious: Yes (Other)
  Sender: FDA-Public Use
  Company Number: PHEH2016US010808

PATIENT
  Sex: Female
  Weight: 103 kg

DRUGS (14)
  1. SKELAXIN [Concomitant]
     Active Substance: METAXALONE
     Indication: PRODUCT USED FOR UNKNOWN INDICATION
     Dosage: 800 MG, BID
     Route: 065
  2. GABAPENTIN. [Concomitant]
     Active Substance: GABAPENTIN
     Indication: PRODUCT USED FOR UNKNOWN INDICATION
     Dosage: 900 MG, QD
     Route: 065
  3. CANDESARTAN. [Concomitant]
     Active Substance: CANDESARTAN
     Indication: PRODUCT USED FOR UNKNOWN INDICATION
     Route: 065
  4. COSENTYX [Suspect]
     Active Substance: SECUKINUMAB
     Dosage: 300 MG (EVERY 28 DAYS)
     Route: 065
  5. CELEBREX [Suspect]
     Active Substance: CELECOXIB
     Indication: PRODUCT USED FOR UNKNOWN INDICATION
     Dosage: 200 MG, BID
     Route: 065
  6. PREDNISON [Concomitant]
     Active Substance: PREDNISONE
     Indication: PRODUCT USED FOR UNKNOWN INDICATION
     Route: 065
  7. FIORICET [Concomitant]
     Active Substance: ACETAMINOPHEN\BUTALBITAL\CAFFEINE
     Indication: PRODUCT USED FOR UNKNOWN INDICATION
     Route: 065
  8. FISH OIL [Concomitant]
     Active Substance: FISH OIL
     Indication: BLOOD CHOLESTEROL ABNORMAL
     Route: 065
  9. CYMBALTA [Concomitant]
     Active Substance: DULOXETINE HYDROCHLORIDE
     Indication: PRODUCT USED FOR UNKNOWN INDICATION
     Dosage: 30 MG, QD
     Route: 065
  10. MELOXIM [Concomitant]
     Indication: PRODUCT USED FOR UNKNOWN INDICATION
     Route: 065
  11. PRAVASTATIN. [Concomitant]
     Active Substance: PRAVASTATIN
     Indication: PRODUCT USED FOR UNKNOWN INDICATION
     Route: 065
  12. TRAMADOL. [Concomitant]
     Active Substance: TRAMADOL
     Indication: PRODUCT USED FOR UNKNOWN INDICATION
     Dosage: 25 MG, TID OR QID
     Route: 065
  13. NORTRIPTYLINE [Concomitant]
     Active Substance: NORTRIPTYLINE
     Indication: PRODUCT USED FOR UNKNOWN INDICATION
     Dosage: 10 MG/DL
     Route: 065
  14. COSENTYX [Suspect]
     Active Substance: SECUKINUMAB
     Indication: ANKYLOSING SPONDYLITIS
     Dosage: UNK
     Route: 058
     Dates: start: 20160407

REACTIONS (27)
  - Neck pain [Unknown]
  - Furuncle [Recovered/Resolved]
  - Malaise [Unknown]
  - Psoriasis [Unknown]
  - Photophobia [Unknown]
  - Musculoskeletal stiffness [Unknown]
  - Migraine [Recovering/Resolving]
  - Pain in extremity [Unknown]
  - Asthenia [Unknown]
  - Drug effect delayed [Unknown]
  - Constipation [Unknown]
  - Somnolence [Unknown]
  - Weight decreased [Unknown]
  - Hyperacusis [Unknown]
  - Enthesopathy [Unknown]
  - Claustrophobia [Unknown]
  - Cystitis interstitial [Unknown]
  - Feeling abnormal [Unknown]
  - Arthritis [Unknown]
  - Pain [Unknown]
  - Mobility decreased [Recovering/Resolving]
  - Back disorder [Unknown]
  - Dysuria [Unknown]
  - Gait disturbance [Recovering/Resolving]
  - Ankylosing spondylitis [Unknown]
  - Fatigue [Unknown]
  - Limb discomfort [Unknown]
